FAERS Safety Report 6926501-X (Version None)
Quarter: 2010Q3

REPORT INFORMATION
  Report Type: 
  Country: None (occurrence: None)
  Receive Date: 20100816
  Receipt Date: 20100526
  Transmission Date: 20110219
  Serious: No
  Sender: FDA-Public Use
  Company Number: US-ABBOTT-09P-163-0567114-00

PATIENT
  Sex: Male
  Weight: 70.37 kg

DRUGS (2)
  1. SIMCOR [Suspect]
     Indication: PRODUCT USED FOR UNKNOWN INDICATION
     Dosage: 500/20 MG
     Dates: start: 20090101, end: 20100526
  2. SIMCOR [Suspect]
     Dosage: 500/20 MG (TWO TABLETS)
     Dates: start: 20100526

REACTIONS (5)
  - FEELING HOT [None]
  - FLUSHING [None]
  - LOW DENSITY LIPOPROTEIN INCREASED [None]
  - PARAESTHESIA [None]
  - PRURITUS [None]
